FAERS Safety Report 19158466 (Version 1)
Quarter: 2021Q2

REPORT INFORMATION
  Report Type: Spontaneous
  Country: US (occurrence: US)
  Receive Date: 20210420
  Receipt Date: 20210420
  Transmission Date: 20210717
  Serious: No
  Sender: FDA-Public Use
  Company Number: US-BRISTOL-MYERS SQUIBB COMPANY-BMS-2021-035489

PATIENT
  Age: 60 Year
  Sex: Female

DRUGS (2)
  1. IPILIMUMAB [Suspect]
     Active Substance: IPILIMUMAB
     Indication: PHAEOCHROMOCYTOMA
     Dosage: 1 MILLIGRAM/KILOGRAM
     Route: 065
  2. NIVOLUMAB [Suspect]
     Active Substance: NIVOLUMAB
     Indication: PHAEOCHROMOCYTOMA
     Dosage: 3 MILLIGRAM/KILOGRAM
     Route: 065

REACTIONS (2)
  - Intentional product use issue [Unknown]
  - Rash pruritic [Unknown]
